FAERS Safety Report 18878946 (Version 2)
Quarter: 2021Q1

REPORT INFORMATION
  Report Type: Spontaneous
  Country: BR (occurrence: BR)
  Receive Date: 20210211
  Receipt Date: 20210302
  Transmission Date: 20210420
  Serious: Yes (Other)
  Sender: FDA-Public Use
  Company Number: NVSC2021BR028610

PATIENT
  Sex: Female

DRUGS (2)
  1. ESTRADOT [Suspect]
     Active Substance: ESTRADIOL
     Indication: PRODUCT USED FOR UNKNOWN INDICATION
     Dosage: 50 UG (D 8TTS BR)
     Route: 065
  2. NATIFA [Concomitant]
     Active Substance: ESTRADIOL
     Indication: PRODUCT USED FOR UNKNOWN INDICATION
     Dosage: (2 MONTHS AGO)
     Route: 065

REACTIONS (2)
  - Malaise [Unknown]
  - Thrombosis [Unknown]
